FAERS Safety Report 14913510 (Version 1)
Quarter: 2018Q2

REPORT INFORMATION
  Report Type: Spontaneous
  Country: DE (occurrence: DE)
  Receive Date: 20180518
  Receipt Date: 20180518
  Transmission Date: 20180711
  Serious: Yes (Death, Hospitalization, Disabling, Other)
  Sender: FDA-Public Use
  Company Number: DE-PFIZER INC-2018201894

PATIENT
  Age: 46 Year
  Sex: Male
  Weight: 76 kg

DRUGS (9)
  1. OXALIPLATIN. [Suspect]
     Active Substance: OXALIPLATIN
     Indication: COLORECTAL CANCER
     Dosage: 100 MG, WEEKLY
     Route: 042
     Dates: start: 20130618, end: 20130813
  2. IRINOTECAN [Concomitant]
     Active Substance: IRINOTECAN
     Indication: COLORECTAL CANCER
     Dosage: 160 MG, UNK
     Route: 065
     Dates: start: 20130514, end: 20130604
  3. 5-FLUOROURACIL [Suspect]
     Active Substance: FLUOROURACIL
     Dosage: DAILY DOSE: 4000 MG MILLGRAM(S) EVERY WEEKS
     Route: 042
     Dates: start: 20130514
  4. NOVAMIN [Concomitant]
     Indication: PAIN
     Dosage: DAILY DOSE: 6 G GRAM(S) EVERY DAYS
     Route: 048
     Dates: start: 20130618
  5. FOLINIC ACID [Concomitant]
     Active Substance: LEUCOVORIN
     Indication: COLORECTAL CANCER
     Dosage: 1000 MG, UNK
     Route: 065
     Dates: start: 20130514, end: 20130813
  6. AVASTIN [Suspect]
     Active Substance: BEVACIZUMAB
     Indication: COLORECTAL CANCER
     Dosage: 380 MG, UNK
     Route: 042
     Dates: start: 20130515, end: 20130702
  7. CLEXANE [Concomitant]
     Active Substance: ENOXAPARIN SODIUM
     Indication: THROMBOPHLEBITIS
     Dosage: UNK
     Route: 065
     Dates: start: 20130608
  8. 5-FLUOROURACIL [Suspect]
     Active Substance: FLUOROURACIL
     Indication: COLORECTAL CANCER
     Dosage: 4000 MG, UNK
     Route: 041
     Dates: start: 20130618, end: 20130813
  9. DICLOPHENAC [Concomitant]
     Active Substance: DICLOFENAC SODIUM
     Indication: PAIN IN EXTREMITY
     Dosage: DAILY DOSE: 150 MG MILLGRAM(S) EVERY DAYS
     Route: 048
     Dates: start: 20130528, end: 20130625

REACTIONS (2)
  - Neoplasm progression [Fatal]
  - Intestinal obstruction [Fatal]

NARRATIVE: CASE EVENT DATE: 20130604
